FAERS Safety Report 20499062 (Version 1)
Quarter: 2022Q1

REPORT INFORMATION
  Report Type: Spontaneous
  Country: US (occurrence: US)
  Receive Date: 20220222
  Receipt Date: 20220222
  Transmission Date: 20220423
  Serious: No
  Sender: FDA-Public Use
  Company Number: US-SANOFI-00948507

PATIENT
  Age: 44 Year
  Sex: Male

DRUGS (4)
  1. DUPIXENT [Suspect]
     Active Substance: DUPILUMAB
     Indication: Nasal polyps
     Dosage: 300 MG, QOW
     Route: 058
     Dates: start: 20211229
  2. DUPIXENT [Suspect]
     Active Substance: DUPILUMAB
     Dosage: 300 MG, QOW
     Route: 058
     Dates: start: 202201
  3. ZINC [Concomitant]
     Active Substance: ZINC
     Dosage: 66MG
  4. FISH OIL [Concomitant]
     Active Substance: FISH OIL

REACTIONS (6)
  - COVID-19 [Unknown]
  - Product use in unapproved indication [Unknown]
  - Upper-airway cough syndrome [Unknown]
  - Sneezing [Unknown]
  - SARS-CoV-2 test positive [Unknown]
  - Anosmia [Unknown]

NARRATIVE: CASE EVENT DATE: 20211229
